FAERS Safety Report 7983618-9 (Version None)
Quarter: 2011Q4

REPORT INFORMATION
  Report Type: 
  Country: None (occurrence: None)
  Receive Date: 20111215
  Receipt Date: 20111209
  Transmission Date: 20120403
  Serious: Yes (Other)
  Sender: FDA-Public Use
  Company Number: PHEH2011US011406

PATIENT
  Sex: Male

DRUGS (1)
  1. GLEEVEC [Suspect]
     Indication: GASTRIC CANCER
     Dosage: 400 MG, BID
     Route: 048

REACTIONS (4)
  - DECREASED APPETITE [None]
  - CONSTIPATION [None]
  - FLATULENCE [None]
  - HEPATIC NEOPLASM [None]
